FAERS Safety Report 5997296-1 (Version None)
Quarter: 2008Q4

REPORT INFORMATION
  Report Type: 
  Country: None (occurrence: None)
  Receive Date: 20081204
  Receipt Date: 20081118
  Transmission Date: 20090506
  Serious: Yes (Death)
  Sender: FDA-Public Use
  Company Number: B0548253A

PATIENT
  Age: 14 Year
  Sex: Male

DRUGS (2)
  1. MELPHALAN (FORMULATION UNKNOWN) (GENERIC) [Suspect]
     Indication: CHEMOTHERAPY
  2. HYDROCORTISONE (FORMULATION UNKNOWN) (GENERIC) [Suspect]
     Dosage: INTRATHECAL
     Route: 037

REACTIONS (15)
  - AREFLEXIA [None]
  - CARDIAC ARREST [None]
  - DISORIENTATION [None]
  - DRUG TOXICITY [None]
  - EYE MOVEMENT DISORDER [None]
  - IMMUNE SYSTEM DISORDER [None]
  - LABILE BLOOD PRESSURE [None]
  - LEUKOENCEPHALOPATHY [None]
  - MUSCULAR WEAKNESS [None]
  - NEUROPATHY PERIPHERAL [None]
  - PUPILLARY REFLEX IMPAIRED [None]
  - SUDDEN DEATH [None]
  - TACHYPNOEA [None]
  - TOXIC NEUROPATHY [None]
  - UNRESPONSIVE TO STIMULI [None]
